FAERS Safety Report 14649774 (Version 3)
Quarter: 2018Q2

REPORT INFORMATION
  Report Type: Spontaneous
  Country: US (occurrence: US)
  Receive Date: 20180316
  Receipt Date: 20180501
  Transmission Date: 20180711
  Serious: Yes (Other)
  Sender: FDA-Public Use
  Company Number: US-AMGEN-USASP2018035382

PATIENT
  Sex: Female

DRUGS (5)
  1. ENBREL [Suspect]
     Active Substance: ETANERCEPT
     Dosage: UNK
     Route: 065
     Dates: start: 2016, end: 201711
  2. ENBREL [Suspect]
     Active Substance: ETANERCEPT
     Indication: PRODUCT USED FOR UNKNOWN INDICATION
     Dosage: UNK
     Route: 065
     Dates: end: 2013
  3. ENBREL [Suspect]
     Active Substance: ETANERCEPT
     Dosage: UNK, 2 TIMES/WK
     Route: 065
     Dates: start: 2014, end: 201602
  4. XELJANZ XR [Concomitant]
     Active Substance: TOFACITINIB CITRATE
     Dosage: 11 MG, UNK
     Route: 065
  5. MTX [Suspect]
     Active Substance: METHOTREXATE SODIUM
     Indication: PRODUCT USED FOR UNKNOWN INDICATION
     Dosage: UNK
     Route: 065
     Dates: start: 201112, end: 201203

REACTIONS (4)
  - Psoriatic arthropathy [Recovering/Resolving]
  - Idiopathic pulmonary fibrosis [Unknown]
  - Drug ineffective [Unknown]
  - Psoriasis [Recovering/Resolving]
